FAERS Safety Report 14433815 (Version 9)
Quarter: 2019Q1

REPORT INFORMATION
  Report Type: Spontaneous
  Country: JP (occurrence: JP)
  Receive Date: 20180124
  Receipt Date: 20190129
  Transmission Date: 20190417
  Serious: Yes (Hospitalization, Other)
  Sender: FDA-Public Use
  Company Number: JP-009507513-1709JPN002260J

PATIENT
  Age: 41 Year
  Sex: Male
  Weight: 65 kg

DRUGS (5)
  1. MIYA-BM [Concomitant]
     Active Substance: CLOSTRIDIUM BUTYRICUM SPORES STRAIN M-55
     Dosage: 1 G, TID
     Route: 048
     Dates: start: 20170912
  2. TACROLIMUS HYDRATE [Suspect]
     Active Substance: TACROLIMUS
     Indication: COLITIS
     Dosage: UNK
     Route: 065
     Dates: start: 20171113
  3. ADONA [Concomitant]
     Indication: HAEMOPTYSIS
     Dosage: 30 MG, TID
     Route: 048
     Dates: start: 20160720
  4. KEYTRUDA [Suspect]
     Active Substance: PEMBROLIZUMAB
     Indication: LUNG SQUAMOUS CELL CARCINOMA STAGE IV
     Dosage: 200 MG, Q3W
     Route: 041
     Dates: start: 20170712, end: 20170823
  5. TRANSAMIN [Concomitant]
     Active Substance: TRANEXAMIC ACID
     Indication: HAEMOPTYSIS
     Dosage: 250 MG, TID
     Route: 048
     Dates: start: 20160720

REACTIONS (5)
  - Dysgeusia [Not Recovered/Not Resolved]
  - Pancreatitis acute [Recovered/Resolved]
  - Renal impairment [Recovering/Resolving]
  - Thyroid function test abnormal [Not Recovered/Not Resolved]
  - Colitis [Not Recovered/Not Resolved]

NARRATIVE: CASE EVENT DATE: 20170801
